FAERS Safety Report 21172314 (Version 1)
Quarter: 2022Q3

REPORT INFORMATION
  Report Type: Report from Study
  Country: DE (occurrence: DE)
  Receive Date: 20220804
  Receipt Date: 20220804
  Transmission Date: 20221026
  Serious: Yes (Hospitalization)
  Sender: FDA-Public Use
  Company Number: DE-MYLANLABS-2022M1083441

PATIENT
  Age: 12 Year
  Sex: Female

DRUGS (8)
  1. GABAPENTIN [Suspect]
     Active Substance: GABAPENTIN
     Indication: Neuralgia
     Dosage: 50 MILLIGRAM/KILOGRAM, QD
     Route: 048
  2. CARBAMAZEPINE [Suspect]
     Active Substance: CARBAMAZEPINE
     Indication: Neuralgia
     Dosage: 7.5 MILLIGRAM/KILOGRAM, QD
     Route: 048
  3. IMMUNE GLOBULIN NOS [Suspect]
     Active Substance: IMMUNE GLOBULIN NOS
     Indication: Guillain-Barre syndrome
     Dosage: UNK, QD, UNK (DOSE: 1 G/KG/D)
     Route: 042
  4. AMITRIPTYLINE [Suspect]
     Active Substance: AMITRIPTYLINE
     Indication: Neuralgia
     Dosage: 1 MILLIGRAM/KILOGRAM, QD
     Route: 048
  5. ESKETAMINE [Suspect]
     Active Substance: ESKETAMINE
     Indication: Neuralgia
     Dosage: 0.1 MILLIGRAM/KILOGRAM, QH
     Route: 042
  6. LIDOCAINE [Suspect]
     Active Substance: LIDOCAINE
     Indication: Neuralgia
     Dosage: UNK
     Route: 061
  7. PROPRANOLOL [Concomitant]
     Active Substance: PROPRANOLOL HYDROCHLORIDE
     Indication: Hypertension
     Dosage: 1.5 MILLIGRAM/KILOGRAM, QD
     Route: 048
  8. NIFEDIPINE [Concomitant]
     Active Substance: NIFEDIPINE
     Indication: Hypertension
     Dosage: 0.5 MILLIGRAM/KILOGRAM, QD
     Route: 048

REACTIONS (1)
  - Drug ineffective [Unknown]
